FAERS Safety Report 7489640-3 (Version None)
Quarter: 2011Q2

REPORT INFORMATION
  Report Type: 
  Country: None (occurrence: None)
  Receive Date: 20110519
  Receipt Date: 20110510
  Transmission Date: 20111010
  Serious: No
  Sender: FDA-Public Use
  Company Number: US-BIOGENIDEC-2011BI003324

PATIENT
  Sex: Female

DRUGS (1)
  1. TYSABRI [Suspect]
     Indication: MULTIPLE SCLEROSIS
     Route: 042
     Dates: start: 20071004, end: 20100915

REACTIONS (13)
  - BONE PAIN [None]
  - BURNING SENSATION [None]
  - HERPES ZOSTER [None]
  - ARTHRALGIA [None]
  - ANTIBODY TEST ABNORMAL [None]
  - GAIT DISTURBANCE [None]
  - GENERAL PHYSICAL HEALTH DETERIORATION [None]
  - OXYGEN SATURATION DECREASED [None]
  - BACK PAIN [None]
  - RESPIRATORY DISORDER [None]
  - PALLOR [None]
  - NECK PAIN [None]
  - NARCOLEPSY [None]
